FAERS Safety Report 17225687 (Version 1)
Quarter: 2020Q1

REPORT INFORMATION
  Report Type: Spontaneous
  Country: SE (occurrence: SE)
  Receive Date: 20200102
  Receipt Date: 20200102
  Transmission Date: 20200409
  Serious: Yes (Hospitalization)
  Sender: FDA-Public Use
  Company Number: SE-MYLANLABS-2019M1132373

PATIENT
  Sex: Male

DRUGS (1)
  1. LERGIGAN (PROMETHAZINE) [Suspect]
     Active Substance: PROMETHAZINE HYDROCHLORIDE
     Indication: PRODUCT USED FOR UNKNOWN INDICATION
     Dosage: 5-6 A 25 MG PA EFTERMIDDAGEN DAREFTER 10 ST A 25 MG VID KLOCKAN 6-7 MORGONEN DARPA
     Route: 048
     Dates: start: 20181217, end: 20181218

REACTIONS (6)
  - Tremor [Unknown]
  - Intentional overdose [Unknown]
  - Slow speech [Unknown]
  - Intentional self-injury [Unknown]
  - Agitation [Unknown]
  - Dysarthria [Unknown]

NARRATIVE: CASE EVENT DATE: 20181217
